FAERS Safety Report 23410451 (Version 1)
Quarter: 2024Q1

REPORT INFORMATION
  Report Type: Spontaneous
  Country: PR (occurrence: PR)
  Receive Date: 20240117
  Receipt Date: 20240117
  Transmission Date: 20240409
  Serious: No
  Sender: FDA-Public Use
  Company Number: PR-PFIZER INC-202400011658

PATIENT
  Age: 54 Year
  Sex: Female

DRUGS (1)
  1. CHANTIX [Suspect]
     Active Substance: VARENICLINE TARTRATE
     Indication: Smoking cessation therapy
     Dosage: UNK
     Dates: start: 2021

REACTIONS (4)
  - Sleep disorder [Unknown]
  - Constipation [Unknown]
  - Taste disorder [Unknown]
  - Anger [Unknown]

NARRATIVE: CASE EVENT DATE: 20210101
